FAERS Safety Report 6978443-1 (Version None)
Quarter: 2010Q3

REPORT INFORMATION
  Report Type: 
  Country: None (occurrence: None)
  Receive Date: 20100913
  Receipt Date: 20100902
  Transmission Date: 20110219
  Serious: Yes (Hospitalization, Other)
  Sender: FDA-Public Use
  Company Number: US-ASTRAZENECA-2010SE41346

PATIENT
  Age: 72 Year
  Sex: Female

DRUGS (9)
  1. ZOMIG [Suspect]
     Route: 048
  2. ZOMIG [Suspect]
     Route: 045
     Dates: start: 20100902
  3. COREG [Concomitant]
  4. TRAZODONE HCL [Concomitant]
  5. ATIVAN [Concomitant]
  6. BUSPAR [Concomitant]
  7. TRIMETHOPRIM [Concomitant]
     Indication: BLADDER DISORDER
  8. ATROVENT [Concomitant]
  9. VITAMINS [Concomitant]

REACTIONS (5)
  - BODY HEIGHT DECREASED [None]
  - BREAST CANCER [None]
  - DRUG INEFFECTIVE [None]
  - HIP FRACTURE [None]
  - PARAESTHESIA [None]
